FAERS Safety Report 4990620-8 (Version None)
Quarter: 2006Q2

REPORT INFORMATION
  Report Type: 
  Country: None (occurrence: None)
  Receive Date: 20060501
  Receipt Date: 20060501
  Transmission Date: 20061013
  Serious: Yes (Death, Hospitalization)
  Sender: FDA-Public Use
  Company Number: None

PATIENT
  Sex: Female
  Weight: 97 kg

DRUGS (10)
  1. CYTARABINE [Suspect]
     Indication: BURKITT'S LYMPHOMA
     Dosage: 3940 MG
     Dates: start: 20060410, end: 20060411
  2. CYTARABINE [Suspect]
     Indication: LEUKAEMIA
     Dosage: 3940 MG
     Dates: start: 20060410, end: 20060411
  3. DEXAMETHASONE [Suspect]
     Dosage: 100 MG
     Dates: start: 20060407
  4. ETOPOSIDE [Suspect]
     Dosage: 316 MG
     Dates: start: 20060410
  5. G-CSF (FILGRASTIM, AMGEN) [Suspect]
     Dosage: 960 MG
     Dates: start: 20060413
  6. IFOSFAMIDE [Suspect]
     Dosage: 79000 MG
     Dates: start: 20060407
  7. LEUCOVORIN CALCIUM [Suspect]
     Dosage: 120 MG
     Dates: start: 20060408
  8. MESNA [Suspect]
     Dosage: 6000 MG
     Dates: start: 20060407
  9. RITUXIMAB (MOAB C2B8 ANTI CD20, CHIMERIC) [Suspect]
     Dosage: 1450 MG
     Dates: start: 20060414, end: 20060418
  10. VINCRISTINE SULFATE [Suspect]
     Dosage: 2 MG

REACTIONS (22)
  - ASCITES [None]
  - BACTERIAL INFECTION [None]
  - BLOOD PH DECREASED [None]
  - BLOOD PRESSURE DECREASED [None]
  - CANDIDURIA [None]
  - CATHETER RELATED INFECTION [None]
  - COLITIS [None]
  - DIALYSIS [None]
  - DIARRHOEA [None]
  - ERYTHEMA MULTIFORME [None]
  - EXPLORATORY OPERATION [None]
  - FEBRILE NEUTROPENIA [None]
  - GASTROINTESTINAL HAEMORRHAGE [None]
  - HEPATIC FAILURE [None]
  - HEPATIC FUNCTION ABNORMAL [None]
  - NAUSEA [None]
  - PLATELET COUNT DECREASED [None]
  - RENAL FAILURE [None]
  - RENAL IMPAIRMENT [None]
  - RESPIRATORY DISTRESS [None]
  - TACHYCARDIA [None]
  - VOMITING [None]
